FAERS Safety Report 21917050 (Version 8)
Quarter: 2023Q2

REPORT INFORMATION
  Report Type: Report from Study
  Country: BR (occurrence: None)
  Receive Date: 20230126
  Receipt Date: 20230417
  Transmission Date: 20230721
  Serious: Yes (Hospitalization)
  Sender: FDA-Public Use
  Company Number: BR-Eisai Medical Research-EC-2023-132526

PATIENT
  Age: 55 Year
  Sex: Female
  Weight: 88 kg

DRUGS (12)
  1. LENVATINIB [Suspect]
     Active Substance: LENVATINIB
     Indication: Clear cell renal cell carcinoma
     Route: 048
     Dates: start: 20220801, end: 20230109
  2. PEMBROLIZUMAB [Suspect]
     Active Substance: PEMBROLIZUMAB
     Indication: Clear cell renal cell carcinoma
     Route: 041
     Dates: start: 20220801, end: 20221208
  3. PEMBROLIZUMAB [Suspect]
     Active Substance: PEMBROLIZUMAB
     Route: 041
     Dates: start: 20230206
  4. INSULIN GLARGINE [Concomitant]
     Active Substance: INSULIN GLARGINE
     Dates: start: 200801
  5. SIMVASTATIN [Concomitant]
     Active Substance: SIMVASTATIN
     Dates: start: 200801
  6. PREGABALIN [Concomitant]
     Active Substance: PREGABALIN
     Dates: start: 201601
  7. ALLOPURINOL [Concomitant]
     Active Substance: ALLOPURINOL
     Dates: start: 202101
  8. VITAMIN E\VITAMINS [Concomitant]
     Active Substance: .ALPHA.-TOCOPHEROL\VITAMINS
     Dates: start: 20220910
  9. DIPYRONE [Concomitant]
     Active Substance: DIPYRONE
     Dates: start: 20220802
  10. LEVOTHYROXINE SODIUM [Concomitant]
     Active Substance: LEVOTHYROXINE SODIUM
     Dates: start: 20221117
  11. BUPRENORPHINE [Concomitant]
     Active Substance: BUPRENORPHINE
     Dates: start: 20221120
  12. UREA [Concomitant]
     Active Substance: UREA
     Dates: start: 20221221

REACTIONS (1)
  - Embolism arterial [Not Recovered/Not Resolved]

NARRATIVE: CASE EVENT DATE: 20230109
